FAERS Safety Report 4876675-X (Version None)
Quarter: 2006Q1

REPORT INFORMATION
  Report Type: 
  Country: None (occurrence: None)
  Receive Date: 20060110
  Receipt Date: 20051128
  Transmission Date: 20060701
  Serious: Yes (Disabling)
  Sender: FDA-Public Use
  Company Number: GB-AVENTIS-200520692GDDC

PATIENT
  Age: 69 Year
  Sex: Male

DRUGS (19)
  1. LANTUS [Suspect]
     Dosage: DOSE: VARIABLE
     Route: 058
     Dates: start: 20051109, end: 20051123
  2. ACTRAPID [Concomitant]
  3. NOVORAPID [Concomitant]
     Dates: start: 20051109
  4. LANSOPRAZOLE [Concomitant]
     Dates: start: 20051114
  5. TYLEX [Concomitant]
     Dates: start: 20051121
  6. LACTULOSE [Concomitant]
     Dates: start: 20051121
  7. MEBEVERINE [Concomitant]
     Dates: start: 20050920
  8. BISACODYL [Concomitant]
     Dosage: DOSE: 1 OR 2
     Dates: start: 20051114
  9. PARACETAMOL [Concomitant]
     Dosage: DOSE: 1-2
     Dates: start: 20050930
  10. WARFARIN [Concomitant]
     Dates: start: 20051121
  11. WARFARIN [Concomitant]
     Dates: start: 20051121
  12. CIPROFLOXACIN [Concomitant]
     Dates: start: 20051024
  13. ENALAPRIL MALEATE [Concomitant]
     Dates: start: 20051121
  14. CALCICHEW-D3 [Concomitant]
     Dates: start: 20051121
  15. AMITRIPTYLINE HCL [Concomitant]
     Dates: start: 20050419
  16. PREDNISOLONE [Concomitant]
     Dates: start: 20051024
  17. PREDNISOLONE [Concomitant]
     Dates: start: 20051024
  18. ALFUZOSIN HYDROCHLORIDE [Concomitant]
     Dates: start: 20051121
  19. ATENOLOL [Concomitant]
     Dates: start: 20051121

REACTIONS (5)
  - ASTHENIA [None]
  - FEELING ABNORMAL [None]
  - OEDEMA PERIPHERAL [None]
  - PHOTOSENSITIVITY REACTION [None]
  - TREMOR [None]
